FAERS Safety Report 15349989 (Version 2)
Quarter: 2018Q4

REPORT INFORMATION
  Report Type: Report from Study
  Country: IT (occurrence: IT)
  Receive Date: 20180904
  Receipt Date: 20181010
  Transmission Date: 20190204
  Serious: Yes (Hospitalization)
  Sender: FDA-Public Use
  Company Number: IT-ELI_LILLY_AND_COMPANY-IT201808012655

PATIENT
  Age: 16 Year
  Sex: Female

DRUGS (1)
  1. FLUOXETINE HYDROCHLORIDE. [Suspect]
     Active Substance: FLUOXETINE HYDROCHLORIDE
     Indication: DRUG ABUSE
     Dosage: 230 MG, UNKNOWN
     Route: 048
     Dates: start: 20180726, end: 20180726

REACTIONS (3)
  - Depressed mood [Recovering/Resolving]
  - Faeces discoloured [Recovering/Resolving]
  - Overdose [Recovering/Resolving]

NARRATIVE: CASE EVENT DATE: 20180726
